FAERS Safety Report 23125833 (Version 3)
Quarter: 2023Q4

REPORT INFORMATION
  Report Type: Spontaneous
  Country: US (occurrence: US)
  Receive Date: 20231030
  Receipt Date: 20231030
  Transmission Date: 20240110
  Serious: Yes (Other)
  Sender: FDA-Public Use
  Company Number: US-Eisai-EC-2023-150385

PATIENT
  Age: 77 Year
  Sex: Male

DRUGS (14)
  1. LEQEMBI [Suspect]
     Active Substance: LECANEMAB-IRMB
     Indication: Dementia Alzheimer^s type
     Route: 042
     Dates: start: 20230918, end: 20230918
  2. LEQEMBI [Suspect]
     Active Substance: LECANEMAB-IRMB
     Route: 042
     Dates: start: 20231002, end: 20231002
  3. LEQEMBI [Suspect]
     Active Substance: LECANEMAB-IRMB
     Route: 042
     Dates: start: 20231016, end: 20231016
  4. ASPIRIN [Concomitant]
     Active Substance: ASPIRIN
  5. COREG [Concomitant]
     Active Substance: CARVEDILOL
     Dosage: DOSE AND FREQUENCY UNKNOWN
  6. RESTASIS [Concomitant]
     Active Substance: CYCLOSPORINE
     Dosage: DOSE AND FREQUENCY UNKNOWN
  7. ZETIA [Concomitant]
     Active Substance: EZETIMIBE
     Dosage: DOSE AND FREQUENCY UNKNOWN
  8. GLIPIZIDE ER [Concomitant]
     Active Substance: GLIPIZIDE
     Dosage: DOSE AND FREQUENCY UNKNOWN
  9. VASCEPA [Concomitant]
     Active Substance: ICOSAPENT ETHYL
     Dosage: DOSE AND FREQUENCY UNKNOWN
  10. TRADJENTA [Concomitant]
     Active Substance: LINAGLIPTIN
     Dosage: DOSE AND FREQUENCY UNKNOWN
  11. VELTASSA [Concomitant]
     Active Substance: PATIROMER
     Dosage: DOSE AND FREQUENCY UNKNOWN
  12. CRESTOR [Concomitant]
     Active Substance: ROSUVASTATIN CALCIUM
     Dosage: DOSE AND FREQUENCY UNKNOWN
  13. VIAGRA [Concomitant]
     Active Substance: SILDENAFIL CITRATE
     Dosage: DOSE AND FREQUENCY UNKNOWN
  14. CIALIS [Concomitant]
     Active Substance: TADALAFIL
     Dosage: DOSE AND FREQUENCY UNKNOWN

REACTIONS (10)
  - Generalised tonic-clonic seizure [Unknown]
  - Hyperhidrosis [Unknown]
  - Headache [Unknown]
  - Pyrexia [Unknown]
  - Fatigue [Unknown]
  - Decreased appetite [Unknown]
  - Feeling abnormal [Unknown]
  - Abnormal dreams [Unknown]
  - Amyloid related imaging abnormality-microhaemorrhages and haemosiderin deposits [Unknown]
  - Amyloid related imaging abnormality-oedema/effusion [Unknown]

NARRATIVE: CASE EVENT DATE: 20230918
